FAERS Safety Report 15921207 (Version 1)
Quarter: 2019Q1

REPORT INFORMATION
  Report Type: Report from Study
  Country: US (occurrence: US)
  Receive Date: 20190205
  Receipt Date: 20190205
  Transmission Date: 20190417
  Serious: Yes (Other)
  Sender: FDA-Public Use
  Company Number: US-ARIAD PHARMACEUTICALS, INC-2017US007746

PATIENT
  Sex: Male

DRUGS (1)
  1. PONATINIB [Suspect]
     Active Substance: PONATINIB
     Indication: ACUTE LYMPHOCYTIC LEUKAEMIA
     Dosage: 30 MILLIGRAM, QD
     Route: 048
     Dates: start: 20160404

REACTIONS (7)
  - Hypertension [Unknown]
  - Cerebral ventricle dilatation [Unknown]
  - Cytomegalovirus infection [Unknown]
  - Monoclonal gammopathy [Unknown]
  - Constipation [Not Recovered/Not Resolved]
  - Nephrotic syndrome [Unknown]
  - White matter lesion [Unknown]
